FAERS Safety Report 7247701-8 (Version None)
Quarter: 2011Q1

REPORT INFORMATION
  Report Type: 
  Country: None (occurrence: None)
  Receive Date: 20110127
  Receipt Date: 20110118
  Transmission Date: 20110831
  Serious: Yes (Hospitalization, Other)
  Sender: FDA-Public Use
  Company Number: US-MERCK-0808USA02336

PATIENT
  Age: 61 Year
  Sex: Female
  Weight: 75 kg

DRUGS (10)
  1. NORVASC [Concomitant]
     Indication: HYPERTENSION
     Route: 065
     Dates: start: 19890101
  2. CARAFATE [Concomitant]
     Route: 065
     Dates: start: 19890101
  3. LIPITOR [Concomitant]
     Indication: BLOOD CHOLESTEROL INCREASED
     Route: 065
     Dates: start: 19890101
  4. FOSAMAX [Suspect]
     Indication: OSTEOPOROSIS
     Route: 048
     Dates: start: 20001106, end: 20050103
  5. HORMONES (UNSPECIFIED) [Concomitant]
     Route: 065
     Dates: start: 19580101
  6. FOSAMAX [Suspect]
     Indication: OSTEOPENIA
     Route: 048
     Dates: start: 20001106, end: 20050103
  7. KLONOPIN [Concomitant]
     Route: 065
     Dates: start: 19890101
  8. PERCOCET [Concomitant]
     Indication: BACK PAIN
     Route: 065
     Dates: start: 19840101, end: 20050101
  9. KLOR-CON [Concomitant]
     Route: 065
     Dates: start: 19890101
  10. PROTONIX [Concomitant]
     Route: 065
     Dates: start: 19890101

REACTIONS (37)
  - PYREXIA [None]
  - ORAL TORUS [None]
  - MOUTH ULCERATION [None]
  - IMPAIRED HEALING [None]
  - UPPER RESPIRATORY TRACT INFECTION [None]
  - TRIGGER FINGER [None]
  - DRUG HYPERSENSITIVITY [None]
  - OVERDOSE [None]
  - ADVERSE DRUG REACTION [None]
  - ASTHMA [None]
  - PNEUMONIA ASPIRATION [None]
  - PHARYNGEAL ERYTHEMA [None]
  - SLEEP DISORDER [None]
  - CHRONIC OBSTRUCTIVE PULMONARY DISEASE [None]
  - DEPRESSION [None]
  - ARTHROPATHY [None]
  - ANKLE FRACTURE [None]
  - VOMITING [None]
  - GINGIVAL INFECTION [None]
  - BRONCHITIS [None]
  - ARTHRALGIA [None]
  - PNEUMONIA [None]
  - ANXIETY [None]
  - TENDONITIS [None]
  - LEUKOCYTOSIS [None]
  - MUSCULOSKELETAL PAIN [None]
  - URINARY TRACT DISORDER [None]
  - WEIGHT INCREASED [None]
  - OSTEONECROSIS OF JAW [None]
  - ACINETOBACTER INFECTION [None]
  - ENCEPHALITIS [None]
  - HYPOKALAEMIA [None]
  - TYPE 2 DIABETES MELLITUS [None]
  - OSTEOMYELITIS [None]
  - HEADACHE [None]
  - MIGRAINE [None]
  - HYPOCALCAEMIA [None]
